FAERS Safety Report 13158175 (Version 1)
Quarter: 2017Q1

REPORT INFORMATION
  Report Type: Spontaneous
  Country: FR (occurrence: FR)
  Receive Date: 20170127
  Receipt Date: 20170127
  Transmission Date: 20170428
  Serious: Yes (Life-Threatening, Hospitalization, Other)
  Sender: FDA-Public Use
  Company Number: FR-ASTRAZENECA-2017SE07908

PATIENT
  Age: 13249 Day
  Sex: Male

DRUGS (10)
  1. ONGLYZA [Suspect]
     Active Substance: SAXAGLIPTIN HYDROCHLORIDE
     Dosage: 10 TABLETS
     Route: 048
     Dates: start: 20161220
  2. SODIUM VALPROATE [Suspect]
     Active Substance: VALPROATE SODIUM
     Dosage: 11 TABLETS
     Route: 065
     Dates: start: 20161220
  3. BACTRIM [Concomitant]
     Active Substance: SULFAMETHOXAZOLE\TRIMETHOPRIM
  4. METFORMINE [Suspect]
     Active Substance: METFORMIN HYDROCHLORIDE
     Dosage: 60 TABLETS
     Route: 065
     Dates: start: 20161220
  5. URBANYL [Suspect]
     Active Substance: CLOBAZAM
     Route: 065
     Dates: start: 20161220
  6. KEPPRA [Concomitant]
     Active Substance: LEVETIRACETAM
  7. TERCIAN [Concomitant]
     Active Substance: CYAMEMAZINE
  8. EFFEXOR [Concomitant]
     Active Substance: VENLAFAXINE HYDROCHLORIDE
  9. DEPAKINE CHRONO [Concomitant]
     Active Substance: VALPROATE SODIUM
  10. LEVETIRACETAM. [Suspect]
     Active Substance: LEVETIRACETAM
     Route: 065

REACTIONS (5)
  - Coma [Recovered/Resolved]
  - Metabolic encephalopathy [Recovered/Resolved]
  - Blood lactic acid increased [Recovered/Resolved]
  - Brain oedema [Unknown]
  - Toxicity to various agents [Unknown]

NARRATIVE: CASE EVENT DATE: 20161220
